FAERS Safety Report 9148864 (Version 1)
Quarter: 2013Q1

REPORT INFORMATION
  Report Type: Spontaneous
  Country: US (occurrence: US)
  Receive Date: 20130308
  Receipt Date: 20130308
  Transmission Date: 20140127
  Serious: Yes (Other)
  Sender: FDA-Public Use
  Company Number: US-MYLANLABS-2013S1004561

PATIENT
  Age: 48 Year
  Sex: Female

DRUGS (6)
  1. METHOTREXATE [Suspect]
     Indication: CUTANEOUS SARCOIDOSIS
     Dosage: 15 MG/WEEK
     Route: 065
  2. METHOTREXATE [Suspect]
     Indication: CUTANEOUS SARCOIDOSIS
     Dosage: 22.5 MG/WEEK
     Route: 065
  3. HYDROXYCHLOROQUINE [Suspect]
     Indication: CUTANEOUS SARCOIDOSIS
     Dosage: INITIAL MEDICATION
     Route: 065
  4. HYDROXYCHLOROQUINE [Suspect]
     Indication: CUTANEOUS SARCOIDOSIS
     Dosage: 250 MG/DAY
     Route: 065
  5. MINOCYCLINE [Concomitant]
     Indication: CUTANEOUS SARCOIDOSIS
     Route: 065
  6. METHYLPREDNISOLONE [Concomitant]
     Indication: CUTANEOUS SARCOIDOSIS
     Dosage: PULSE
     Route: 065

REACTIONS (4)
  - Leukopenia [Unknown]
  - Diarrhoea [Unknown]
  - Liver function test abnormal [Unknown]
  - Abdominal pain [Unknown]
